FAERS Safety Report 18483003 (Version 5)
Quarter: 2021Q1

REPORT INFORMATION
  Report Type: Spontaneous
  Country: ES (occurrence: ES)
  Receive Date: 20201109
  Receipt Date: 20210208
  Transmission Date: 20210419
  Serious: Yes (Other)
  Sender: FDA-Public Use
  Company Number: ES-INSUD PHARMA-2010ES00251

PATIENT

DRUGS (2)
  1. COPPER IUD [Concomitant]
     Active Substance: COPPER
     Dosage: UNK
     Dates: end: 20201007
  2. SLINDA [Suspect]
     Active Substance: DROSPIRENONE
     Indication: MENORRHAGIA
     Dosage: 1 TABLET/DAY
     Route: 048
     Dates: start: 20200915, end: 202010

REACTIONS (3)
  - Pain in extremity [Recovering/Resolving]
  - Product use in unapproved indication [Unknown]
  - Deep vein thrombosis [Recovering/Resolving]

NARRATIVE: CASE EVENT DATE: 20200922
